FAERS Safety Report 9378658 (Version 3)
Quarter: 2014Q1

REPORT INFORMATION
  Report Type: Spontaneous
  Country: FR (occurrence: None)
  Receive Date: 20130626
  Receipt Date: 20140311
  Transmission Date: 20141002
  Serious: Yes (Hospitalization)
  Sender: FDA-Public Use
  Company Number: SYM-2013-04954

PATIENT
  Age: 10 Year
  Sex: Male

DRUGS (9)
  1. FLAGYL [Suspect]
     Indication: EMPYEMA
     Route: 042
     Dates: start: 20130418, end: 20130502
  2. DOLIPRANE [Suspect]
     Indication: ANALGESIC THERAPY
     Route: 048
     Dates: start: 20130503, end: 20130511
  3. PERFALGAN [Suspect]
     Indication: ANALGESIC THERAPY
     Route: 042
     Dates: start: 20130414, end: 20130502
  4. CEFOTAXIME [Suspect]
     Indication: MENINGITIS BACTERIAL
     Route: 042
     Dates: start: 20130414
  5. KEPPRA [Suspect]
     Indication: EPILEPSY
     Route: 042
     Dates: start: 20130420, end: 20130505
  6. NALBUPHINE [Suspect]
     Indication: ANALGESIC THERAPY
     Route: 042
     Dates: start: 20120504, end: 20130511
  7. ZOPHREN [Suspect]
     Indication: VOMITING
     Route: 042
     Dates: start: 20130504, end: 20130511
  8. DEXAMETHASONE (DEXAMETHASONE)(DEXAMETHASONE) [Concomitant]
  9. VANCOMYCIN HYDROCHLORIDE [Concomitant]

REACTIONS (2)
  - Agranulocytosis [None]
  - Anaemia [None]
